FAERS Safety Report 18346324 (Version 2)
Quarter: 2020Q4

REPORT INFORMATION
  Report Type: Spontaneous
  Country: US (occurrence: US)
  Receive Date: 20201005
  Receipt Date: 20201102
  Transmission Date: 20210114
  Serious: Yes (Other)
  Sender: FDA-Public Use
  Company Number: US-PFIZER INC-2020382428

PATIENT
  Age: 38 Year
  Sex: Female

DRUGS (2)
  1. XELJANZ [Suspect]
     Active Substance: TOFACITINIB CITRATE
     Indication: COLITIS ULCERATIVE
     Dosage: 10 MG, 2X/DAY
     Dates: start: 2019
  2. XELJANZ [Suspect]
     Active Substance: TOFACITINIB CITRATE
     Dosage: 5 MG, 2X/DAY (1 TAB TWICE DAILY)
     Route: 048

REACTIONS (7)
  - Anaemia [Unknown]
  - Depressed mood [Unknown]
  - Colitis ulcerative [Unknown]
  - Migraine [Unknown]
  - Condition aggravated [Unknown]
  - Memory impairment [Unknown]
  - Contusion [Unknown]
